FAERS Safety Report 8698008 (Version 2)
Quarter: 2013Q4

REPORT INFORMATION
  Report Type: Spontaneous
  Country: US (occurrence: US)
  Receive Date: 20120801
  Receipt Date: 20131101
  Transmission Date: 20140711
  Serious: No
  Sender: FDA-Public Use
  Company Number: US-009507513-1207USA009565

PATIENT
  Age: 69 Year
  Sex: Female

DRUGS (4)
  1. JANUVIA [Suspect]
     Route: 048
  2. METFORMIN HYDROCHLORIDE [Suspect]
  3. ONGLYZA [Suspect]
     Dosage: 5 MG, UNK
  4. ONGLYZA [Suspect]
     Dosage: 10 MG, UNK

REACTIONS (1)
  - Glycosylated haemoglobin increased [Unknown]
